FAERS Safety Report 5007232-2 (Version None)
Quarter: 2006Q1

REPORT INFORMATION
  Report Type: 
  Country: None (occurrence: None)
  Receive Date: 20060320
  Receipt Date: 20050404
  Transmission Date: 20060701
  Serious: Yes (Other)
  Sender: FDA-Public Use
  Company Number: 2005-04-0238

PATIENT
  Age: 44 Year
  Sex: Female
  Weight: 67.1324 kg

DRUGS (2)
  1. PEG-INTRON [Suspect]
     Indication: HEPATITIS C
     Dates: start: 20030901, end: 20041026
  2. REBETOL [Suspect]
     Indication: HEPATITIS C
     Dosage: ORA
     Route: 048
     Dates: start: 20030901, end: 20041026

REACTIONS (2)
  - DECREASED APPETITE [None]
  - WEIGHT DECREASED [None]
